FAERS Safety Report 13870282 (Version 2)
Quarter: 2017Q3

REPORT INFORMATION
  Report Type: Spontaneous
  Country: US (occurrence: US)
  Receive Date: 20170815
  Receipt Date: 20170928
  Transmission Date: 20171127
  Serious: No
  Sender: FDA-Public Use
  Company Number: US-009507513-1708USA006389

PATIENT
  Age: 75 Year
  Sex: Male
  Weight: 104.31 kg

DRUGS (4)
  1. EMEND [Suspect]
     Active Substance: APREPITANT
     Indication: PROPHYLACTIC CHEMOTHERAPY
     Dosage: ONCE EVERY 2 WEEKS
     Route: 042
     Dates: start: 20170516, end: 20170920
  2. ZOFRAN [Concomitant]
     Active Substance: ONDANSETRON HYDROCHLORIDE
     Indication: PROPHYLACTIC CHEMOTHERAPY
     Dosage: 16 MG, QD
     Route: 042
     Dates: start: 20161025, end: 20170920
  3. BEVACIZUMAB (+) FLUOROURACIL (+) IRINOTECAN HYDROCHLORIDE (+) LEUCOVOR [Concomitant]
     Indication: CHEMOTHERAPY
     Dosage: STANDARD DOSE REGIMEN
     Route: 042
     Dates: start: 20161025, end: 20170920
  4. DECADRON [Concomitant]
     Active Substance: DEXAMETHASONE
     Indication: PROPHYLACTIC CHEMOTHERAPY
     Dosage: 8 MG, QD
     Route: 042
     Dates: start: 20161025, end: 20170920

REACTIONS (2)
  - Product storage error [Unknown]
  - No adverse event [Unknown]

NARRATIVE: CASE EVENT DATE: 20170724
